FAERS Safety Report 20062778 (Version 1)
Quarter: 2021Q4

REPORT INFORMATION
  Report Type: Spontaneous
  Country: US (occurrence: US)
  Receive Date: 20211112
  Receipt Date: 20211112
  Transmission Date: 20220304
  Serious: No
  Sender: FDA-Public Use
  Company Number: US-MYLANLABS-2021M1074576

PATIENT
  Sex: Male
  Weight: 68 kg

DRUGS (1)
  1. WIXELA INHUB [Suspect]
     Active Substance: FLUTICASONE PROPIONATE\SALMETEROL XINAFOATE
     Indication: Chronic obstructive pulmonary disease
     Dosage: UNK, 250/50MCG, BID(1 PUFF, TWICE A DAY)
     Route: 055

REACTIONS (2)
  - Device mechanical issue [Not Recovered/Not Resolved]
  - Wrong technique in device usage process [Unknown]
